FAERS Safety Report 7761286-9 (Version None)
Quarter: 2011Q3

REPORT INFORMATION
  Report Type: 
  Country: None (occurrence: None)
  Receive Date: 20110915
  Receipt Date: 20110902
  Transmission Date: 20111222
  Serious: Yes (Hospitalization)
  Sender: FDA-Public Use
  Company Number: 2011AP001951

PATIENT
  Age: 64 Year
  Sex: Female

DRUGS (7)
  1. AMIODARONE HCL [Suspect]
     Indication: ATRIAL FIBRILLATION
     Dosage: 400 MG, BID,
  2. MELOXICAM [Concomitant]
  3. OXYCODONE HCL [Concomitant]
  4. TETRACYCLINE [Concomitant]
  5. PAROXETINE HCL [Concomitant]
  6. ALENDRONATE SODIUM [Concomitant]
  7. WARFARIN SODIUM [Concomitant]

REACTIONS (16)
  - INCORRECT DRUG ADMINISTRATION DURATION [None]
  - VOMITING [None]
  - DIARRHOEA [None]
  - HYPERTHYROIDISM [None]
  - TOXICITY TO VARIOUS AGENTS [None]
  - SINUS BRADYCARDIA [None]
  - EXTRASYSTOLES [None]
  - LIVER FUNCTION TEST ABNORMAL [None]
  - EMPHYSEMA [None]
  - LUNG CONSOLIDATION [None]
  - DYSPNOEA [None]
  - CARDIAC ARREST [None]
  - ATELECTASIS [None]
  - TORSADE DE POINTES [None]
  - ELECTROCARDIOGRAM QT PROLONGED [None]
  - NAUSEA [None]
